FAERS Safety Report 21971960 (Version 4)
Quarter: 2023Q1

REPORT INFORMATION
  Report Type: Spontaneous
  Country: NZ (occurrence: NZ)
  Receive Date: 20230209
  Receipt Date: 20230331
  Transmission Date: 20230418
  Serious: Yes (Death, Hospitalization, Other)
  Sender: FDA-Public Use
  Company Number: NZ-JNJFOC-20230206522

PATIENT
  Age: 79 Year
  Sex: Male
  Weight: 89 kg

DRUGS (15)
  1. IMBRUVICA [Suspect]
     Active Substance: IBRUTINIB
     Indication: Mantle cell lymphoma
     Route: 048
     Dates: start: 20220802, end: 20221214
  2. IMBRUVICA [Suspect]
     Active Substance: IBRUTINIB
     Indication: Mantle cell lymphoma
     Route: 048
     Dates: start: 20221226, end: 20230116
  3. DABIGATRAN [Concomitant]
     Active Substance: DABIGATRAN
     Indication: Hypertension
     Route: 065
     Dates: start: 20220726
  4. METOPROLOL [Concomitant]
     Active Substance: METOPROLOL
     Indication: Hypertension
     Route: 065
     Dates: start: 1998
  5. INCRUSE ELLIPTA [Concomitant]
     Active Substance: UMECLIDINIUM BROMIDE
     Indication: Sleep apnoea syndrome
     Route: 065
     Dates: start: 20220614
  6. TEMAZEPAM [Concomitant]
     Active Substance: TEMAZEPAM
     Indication: Product used for unknown indication
     Route: 065
     Dates: start: 20230119, end: 20230130
  7. FLECAINIDE ACETATE KO [Concomitant]
     Indication: Atrial fibrillation
     Route: 065
     Dates: start: 20220913
  8. FLECAINIDE ACETATE KO [Concomitant]
     Indication: Atrial fibrillation
     Route: 065
     Dates: start: 20220913
  9. FUROSEMIDE [Concomitant]
     Active Substance: FUROSEMIDE
     Indication: Hypertension
     Route: 065
  10. FUROSEMIDE [Concomitant]
     Active Substance: FUROSEMIDE
     Indication: Hypertension
     Route: 065
  11. FUROSEMIDE [Concomitant]
     Active Substance: FUROSEMIDE
     Indication: Hypertension
     Route: 065
  12. FINASTERIDE [Concomitant]
     Active Substance: FINASTERIDE
     Indication: Benign prostatic hyperplasia
     Route: 065
     Dates: start: 20150422
  13. HALOPERIDOL [Concomitant]
     Active Substance: HALOPERIDOL
     Indication: Product used for unknown indication
     Route: 065
     Dates: start: 20230119, end: 20230130
  14. ACETAMINOPHEN [Concomitant]
     Active Substance: ACETAMINOPHEN
     Indication: Product used for unknown indication
     Route: 065
     Dates: start: 20230119, end: 20230130
  15. DIGOXIN [Concomitant]
     Active Substance: DIGOXIN
     Indication: Product used for unknown indication
     Dates: start: 20230119, end: 20230130

REACTIONS (4)
  - Mantle cell lymphoma [Fatal]
  - Pneumonia [Fatal]
  - Malignant pleural effusion [Fatal]
  - Pleural effusion [Fatal]

NARRATIVE: CASE EVENT DATE: 20221219
